FAERS Safety Report 9919970 (Version 1)
Quarter: 2014Q1

REPORT INFORMATION
  Report Type: Spontaneous
  Country: GB (occurrence: GB)
  Receive Date: 20140224
  Receipt Date: 20140224
  Transmission Date: 20141002
  Serious: Yes (Other)
  Sender: FDA-Public Use
  Company Number: PHFR2014GB001646

PATIENT
  Sex: 0

DRUGS (1)
  1. FEMARA [Suspect]
     Dosage: UNK UKN, UNK

REACTIONS (1)
  - Subarachnoid haemorrhage [Unknown]
